FAERS Safety Report 14999939 (Version 1)
Quarter: 2018Q2

REPORT INFORMATION
  Report Type: Spontaneous
  Country: AR (occurrence: AR)
  Receive Date: 20180612
  Receipt Date: 20180612
  Transmission Date: 20180711
  Serious: Yes (Death, Other)
  Sender: FDA-Public Use
  Company Number: AR-ACTELION-A-CH2018-173574

PATIENT
  Sex: Female

DRUGS (3)
  1. TRACLEER [Suspect]
     Active Substance: BOSENTAN
     Indication: PULMONARY ARTERIAL HYPERTENSION
     Dosage: 125 MG, OD
     Route: 048
     Dates: start: 201606, end: 201806
  2. TADALAFILO [Concomitant]
     Indication: EMBOLISM
  3. RIOCIGUAT. [Concomitant]
     Active Substance: RIOCIGUAT
     Indication: EMBOLISM

REACTIONS (2)
  - Death [Fatal]
  - Angioplasty [Unknown]

NARRATIVE: CASE EVENT DATE: 20180602
